FAERS Safety Report 7653910-6 (Version None)
Quarter: 2011Q3

REPORT INFORMATION
  Report Type: 
  Country: None (occurrence: None)
  Receive Date: 20110803
  Receipt Date: 20110801
  Transmission Date: 20111222
  Serious: Yes (Death, Hospitalization, Disabling, Other)
  Sender: FDA-Public Use
  Company Number: US-ELI_LILLY_AND_COMPANY-US201001000729

PATIENT
  Sex: Male
  Weight: 95.238 kg

DRUGS (9)
  1. ACIPHEX [Concomitant]
     Dosage: 20 MG, QD
     Route: 048
  2. TUSSIONEX [Concomitant]
     Dosage: 0.5 DF, BID
     Route: 048
  3. ASTELIN [Concomitant]
     Dosage: 2 DF, BID
  4. ALLOPURINOL [Concomitant]
     Dosage: 200 MG, QD
     Route: 048
  5. ZEMPLAR [Concomitant]
     Dosage: 2 UG, 3/W
     Route: 048
  6. ACTOS [Concomitant]
     Dosage: 15 MG, QD
     Route: 048
  7. BYETTA [Suspect]
     Dosage: 5 UG, BID
     Dates: start: 20070701, end: 20070926
  8. NASACORT [Concomitant]
     Dosage: 1 DF, EACH EVENING
  9. TERAZOSIN HCL [Concomitant]
     Dosage: 5 MG, EACH EVENING
     Route: 048

REACTIONS (10)
  - HEPATIC NEOPLASM MALIGNANT [None]
  - PYREXIA [None]
  - LIVER INJURY [None]
  - PANCREATITIS [None]
  - WEIGHT DECREASED [None]
  - RENAL DISORDER [None]
  - NAUSEA [None]
  - PANCREATIC DISORDER [None]
  - PANCREATIC CARCINOMA [None]
  - SKIN DISCOLOURATION [None]
